FAERS Safety Report 5593636-6 (Version None)
Quarter: 2008Q1

REPORT INFORMATION
  Report Type: 
  Country: None (occurrence: None)
  Receive Date: 20080116
  Receipt Date: 20080111
  Transmission Date: 20080703
  Serious: Yes (Other)
  Sender: FDA-Public Use
  Company Number: GB-RANBAXY-2006RR-03252

PATIENT

DRUGS (4)
  1. PARACETAMOL CAPSULES 500MG [Suspect]
     Route: 065
  2. ALCOHOL [Suspect]
     Dosage: 20 UNITS
     Route: 065
  3. SEROXAT [Suspect]
     Indication: ANXIETY
     Dosage: 20 MG, QD
     Route: 065
     Dates: start: 20010425
  4. SEROXAT [Suspect]
     Dosage: 60 MG, UNK

REACTIONS (18)
  - APATHY [None]
  - CONDITION AGGRAVATED [None]
  - CRYING [None]
  - DEPRESSION [None]
  - DEREALISATION [None]
  - HALLUCINATION [None]
  - HEADACHE [None]
  - INDIFFERENCE [None]
  - INSOMNIA [None]
  - IRRITABLE BOWEL SYNDROME [None]
  - MOOD SWINGS [None]
  - MULTIPLE DRUG OVERDOSE INTENTIONAL [None]
  - OBSESSIVE-COMPULSIVE DISORDER [None]
  - PARAESTHESIA [None]
  - SUICIDAL IDEATION [None]
  - SUICIDE ATTEMPT [None]
  - TEARFULNESS [None]
  - WITHDRAWAL SYNDROME [None]
